FAERS Safety Report 6279747-0 (Version None)
Quarter: 2009Q3

REPORT INFORMATION
  Report Type: 
  Country: None (occurrence: None)
  Receive Date: 20090723
  Receipt Date: 20090720
  Transmission Date: 20100115
  Serious: No
  Sender: FDA-Public Use
  Company Number: DE-EISAI INC.-E2090-00709-SPO-DE

PATIENT
  Sex: Male

DRUGS (5)
  1. ZONEGRAN [Suspect]
     Indication: EPILEPSY
     Route: 048
     Dates: start: 20081201
  2. RIVOTRIL [Interacting]
     Indication: EPILEPSY
     Route: 048
  3. NEURONTIN [Interacting]
     Indication: EPILEPSY
     Route: 048
  4. ERGENYL CHRONO [Interacting]
     Indication: EPILEPSY
     Route: 048
  5. CARBAMAZEPINE [Concomitant]
     Indication: EPILEPSY
     Dosage: UNKNOWN
     Route: 048

REACTIONS (4)
  - AGRANULOCYTOSIS [None]
  - DRUG INTERACTION [None]
  - LEUKOPENIA [None]
  - PANCYTOPENIA [None]
